FAERS Safety Report 23554739 (Version 3)
Quarter: 2024Q2

REPORT INFORMATION
  Report Type: Spontaneous
  Country: US (occurrence: US)
  Receive Date: 20240222
  Receipt Date: 20240610
  Transmission Date: 20240716
  Serious: Yes (Hospitalization, Other)
  Sender: FDA-Public Use
  Company Number: US-002147023-NVSC2024US037396

PATIENT
  Age: 51 Year
  Sex: Female

DRUGS (8)
  1. KESIMPTA [Suspect]
     Active Substance: OFATUMUMAB
     Indication: Multiple sclerosis
     Dosage: UNK
     Route: 065
     Dates: start: 20210628
  2. MESALAMINE [Concomitant]
     Active Substance: MESALAMINE
     Indication: Product used for unknown indication
     Dosage: UNK
     Route: 065
  3. AMANTADINE [Concomitant]
     Active Substance: AMANTADINE
     Indication: Product used for unknown indication
     Dosage: 1 DOSAGE FORM, BID (90 DAYS)
     Route: 065
     Dates: start: 20231211
  4. WELLBUTRIN SR [Concomitant]
     Active Substance: BUPROPION HYDROCHLORIDE
     Indication: Product used for unknown indication
     Dosage: 1 DOSAGE FORM, QD (30 DAYS, 5 REFILLS FOR A TOTAL OF 30)
     Route: 048
     Dates: start: 20230914, end: 20240311
  5. XANAX [Concomitant]
     Active Substance: ALPRAZOLAM
     Indication: Product used for unknown indication
     Dosage: 0.5 MG, BID (AS NEEDED)
     Route: 065
     Dates: start: 20220113
  6. CYANOCOBALAMIN [Concomitant]
     Active Substance: CYANOCOBALAMIN
     Indication: Product used for unknown indication
     Dosage: 1000 MCG/ML, QW
     Route: 065
     Dates: start: 20210330
  7. EPI E-Z [Concomitant]
     Indication: Product used for unknown indication
     Dosage: UNK
     Route: 065
  8. MECLIZINE [Concomitant]
     Active Substance: MECLIZINE HYDROCHLORIDE
     Indication: Product used for unknown indication
     Dosage: 1 DOSAGE FORM, BID (AS NEEDED 30 DAYS, FOR A TOTAL OF 60)
     Route: 048
     Dates: start: 20220113

REACTIONS (20)
  - Multiple sclerosis relapse [Unknown]
  - Crohn^s disease [Unknown]
  - Sepsis [Unknown]
  - Deep vein thrombosis [Unknown]
  - Intestinal obstruction [Unknown]
  - Migraine [Unknown]
  - Fatigue [Unknown]
  - Eyelid ptosis [Unknown]
  - Sensory disturbance [Unknown]
  - Diarrhoea [Unknown]
  - Umbilical hernia [Unknown]
  - Stomatitis [Unknown]
  - Weight increased [Unknown]
  - Memory impairment [Unknown]
  - Insomnia [Unknown]
  - Dysgraphia [Unknown]
  - Grip strength decreased [Unknown]
  - Gastrointestinal disorder [Unknown]
  - Headache [Recovered/Resolved]
  - Product dose omission issue [Unknown]

NARRATIVE: CASE EVENT DATE: 20220801
